FAERS Safety Report 16168952 (Version 1)
Quarter: 2019Q2

REPORT INFORMATION
  Report Type: Spontaneous
  Country: US (occurrence: US)
  Receive Date: 20190408
  Receipt Date: 20190408
  Transmission Date: 20190711
  Serious: No
  Sender: FDA-Public Use
  Company Number: US-MYLANLABS-2019M1027913

PATIENT
  Sex: Female

DRUGS (1)
  1. METOPROLOL MYLAN [Suspect]
     Active Substance: METOPROLOL
     Indication: BLOOD PRESSURE ABNORMAL
     Dosage: UNK

REACTIONS (9)
  - Headache [Unknown]
  - Dry eye [Unknown]
  - Musculoskeletal stiffness [Unknown]
  - Tinnitus [Unknown]
  - Abdominal distension [Unknown]
  - Secretion discharge [Unknown]
  - Cough [Unknown]
  - Eructation [Unknown]
  - Ear discomfort [Unknown]
